FAERS Safety Report 25860889 (Version 3)
Quarter: 2025Q4

REPORT INFORMATION
  Report Type: Report from Study
  Country: US (occurrence: US)
  Receive Date: 20250929
  Receipt Date: 20251110
  Transmission Date: 20260118
  Serious: No
  Sender: SANOFI AVENTIS
  Company Number: US-SA-2025SA289261

PATIENT
  Age: 47 Year
  Sex: Female

DRUGS (3)
  1. DUPIXENT [Suspect]
     Active Substance: DUPILUMAB
     Indication: Eosinophilic oesophagitis
     Dosage: 600 MG, 1X
     Route: 058
     Dates: start: 202508, end: 202508
  2. DUPIXENT [Suspect]
     Active Substance: DUPILUMAB
     Indication: Chronic spontaneous urticaria
     Dosage: 300 MG, QOW
     Route: 058
     Dates: start: 202509
  3. DUPIXENT [Suspect]
     Active Substance: DUPILUMAB
     Indication: Urticaria

REACTIONS (7)
  - Photophobia [Not Recovered/Not Resolved]
  - Vision blurred [Not Recovered/Not Resolved]
  - Injection site reaction [Recovered/Resolved]
  - Conjunctivitis [Recovered/Resolved]
  - Eye discharge [Recovered/Resolved]
  - Eye irritation [Recovered/Resolved]
  - Incorrect dose administered [Unknown]

NARRATIVE: CASE EVENT DATE: 20250101
